FAERS Safety Report 24023948 (Version 1)
Quarter: 2024Q2

REPORT INFORMATION
  Report Type: Spontaneous
  Country: CN (occurrence: CN)
  Receive Date: 20240627
  Receipt Date: 20240627
  Transmission Date: 20240715
  Serious: No
  Sender: FDA-Public Use
  Company Number: CN-ROCHE-3428844

PATIENT
  Age: 49 Year
  Sex: Female

DRUGS (14)
  1. ALECENSA [Suspect]
     Active Substance: ALECTINIB HYDROCHLORIDE
     Indication: Lung adenocarcinoma
     Route: 065
     Dates: start: 202103
  2. AVASTIN [Suspect]
     Active Substance: BEVACIZUMAB
     Indication: Lung adenocarcinoma
     Dosage: DAY 1, SUBSEQUENT DOSE WAS ON MAY/2022
     Route: 065
     Dates: start: 202204
  3. PEMETREXED [Concomitant]
     Active Substance: PEMETREXED
     Indication: Lung adenocarcinoma
     Dosage: DAY 1
     Dates: start: 202204
  4. PEMETREXED [Concomitant]
     Active Substance: PEMETREXED
     Dosage: DAY 1
     Dates: start: 202205
  5. CARBOPLATIN [Concomitant]
     Active Substance: CARBOPLATIN
     Indication: Lung adenocarcinoma
     Dosage: DAY 1
     Dates: start: 202204
  6. CARBOPLATIN [Concomitant]
     Active Substance: CARBOPLATIN
     Dosage: DAY 1
     Dates: start: 202205
  7. SINTILIMAB [Concomitant]
     Active Substance: SINTILIMAB
     Indication: Lung adenocarcinoma
     Dosage: DAY 0, FOR 6 CYCLES
     Dates: start: 202206, end: 202211
  8. SINTILIMAB [Concomitant]
     Active Substance: SINTILIMAB
     Dosage: DAY 0
     Dates: start: 202211, end: 202304
  9. PACLITAXEL [Concomitant]
     Active Substance: PACLITAXEL
     Indication: Lung adenocarcinoma
     Dosage: DAY 1, 5, FOR 6 CYCLES
     Dates: start: 202206, end: 202211
  10. CATEQUENTINIB [Concomitant]
     Active Substance: CATEQUENTINIB
     Indication: Lung adenocarcinoma
     Dosage: DAY 1-14, FOR 6 CYCLES
     Dates: start: 202206, end: 202211
  11. CATEQUENTINIB [Concomitant]
     Active Substance: CATEQUENTINIB
     Dosage: DAY 1-14
     Dates: start: 202211, end: 202304
  12. BRIGATINIB [Concomitant]
     Active Substance: BRIGATINIB
     Indication: Lung adenocarcinoma
     Dates: start: 202304
  13. BRIGATINIB [Concomitant]
     Active Substance: BRIGATINIB
     Dates: start: 202304
  14. LORLATINIB [Concomitant]
     Active Substance: LORLATINIB
     Indication: Lung adenocarcinoma
     Dates: start: 202306

REACTIONS (5)
  - Hyperthyroidism [Unknown]
  - Hypothyroidism [Unknown]
  - Pyrexia [Unknown]
  - Drug resistance [Unknown]
  - Disease progression [Unknown]
